FAERS Safety Report 18618464 (Version 2)
Quarter: 2021Q1

REPORT INFORMATION
  Report Type: Spontaneous
  Country: US (occurrence: US)
  Receive Date: 20201215
  Receipt Date: 20210111
  Transmission Date: 20210419
  Serious: No
  Sender: FDA-Public Use
  Company Number: US-PFIZER INC-2020488063

PATIENT
  Age: 64 Year
  Sex: Female

DRUGS (1)
  1. IBRANCE [Suspect]
     Active Substance: PALBOCICLIB
     Indication: BREAST CANCER FEMALE
     Dosage: 125 MG, CYCLIC,(1 TABLET ONCE DAILY ON DAYS 1TO21,FOLLOWED BY 7 DAYS OF REST,REPEATED EVERY 28 DAYS)
     Route: 048
     Dates: start: 202001

REACTIONS (7)
  - Renal pain [Unknown]
  - Acne [Unknown]
  - Urine output decreased [Unknown]
  - Swelling face [Unknown]
  - Pruritus [Unknown]
  - Arthralgia [Unknown]
  - Alopecia [Unknown]

NARRATIVE: CASE EVENT DATE: 2020
